FAERS Safety Report 22302714 (Version 2)
Quarter: 2023Q2

REPORT INFORMATION
  Report Type: Spontaneous
  Country: SI (occurrence: SI)
  Receive Date: 20230510
  Receipt Date: 20230524
  Transmission Date: 20230722
  Serious: Yes (Hospitalization, Other)
  Sender: FDA-Public Use
  Company Number: SI-BAYER-2023A064605

PATIENT
  Age: 82 Year
  Sex: Female

DRUGS (18)
  1. RIVAROXABAN [Suspect]
     Active Substance: RIVAROXABAN
     Indication: Atrial fibrillation
     Dosage: 20 MG, QD
     Route: 048
  2. RIVAROXABAN [Suspect]
     Active Substance: RIVAROXABAN
     Dosage: 15 MG, QD
     Route: 048
  3. PANTOPRAZOLE SODIUM [Concomitant]
     Active Substance: PANTOPRAZOLE SODIUM
  4. PLAVIX [Concomitant]
     Active Substance: CLOPIDOGREL BISULFATE
  5. KEPPRA [Concomitant]
     Active Substance: LEVETIRACETAM
     Dosage: 750 MG
  6. PLIVIT [Concomitant]
  7. ROSUVASTATIN CALCIUM [Concomitant]
     Active Substance: ROSUVASTATIN CALCIUM
  8. METILDIGOXIN [Concomitant]
     Active Substance: METILDIGOXIN
  9. TORENDO [Concomitant]
  10. MIRTAZAPINE [Concomitant]
     Active Substance: MIRTAZAPINE
  11. METFORMIN HYDROCHLORIDE [Concomitant]
     Active Substance: METFORMIN HYDROCHLORIDE
  12. LASIX [Concomitant]
     Active Substance: FUROSEMIDE
  13. GLICLAZIDE [Concomitant]
     Active Substance: GLICLAZIDE
  14. HYDROCHLOROTHIAZIDE\TELMISARTAN [Concomitant]
     Active Substance: HYDROCHLOROTHIAZIDE\TELMISARTAN
  15. BISOPROLOL FUMARATE [Concomitant]
     Active Substance: BISOPROLOL FUMARATE
  16. EXELON [Concomitant]
     Active Substance: RIVASTIGMINE TARTRATE
  17. ANALGIN [ACETYLSALICYLIC ACID;CAFFEINE;PARACETAMOL] [Concomitant]
  18. METFORMIN HYDROCHLORIDE [Concomitant]
     Active Substance: METFORMIN HYDROCHLORIDE

REACTIONS (18)
  - Ischaemic stroke [Recovering/Resolving]
  - Hemianopia homonymous [Recovering/Resolving]
  - Epilepsy [Recovering/Resolving]
  - Facial spasm [Recovering/Resolving]
  - Transient ischaemic attack [Unknown]
  - COVID-19 [Unknown]
  - Acute myocardial infarction [Unknown]
  - Respiratory failure [Unknown]
  - Renal impairment [Unknown]
  - Hypokalaemia [Unknown]
  - Fall [Unknown]
  - Confusional state [Unknown]
  - Chest pain [Unknown]
  - Cardiac failure [Unknown]
  - Suffocation feeling [Unknown]
  - Blood pressure increased [Unknown]
  - Dyspnoea [Unknown]
  - Peripheral swelling [Unknown]

NARRATIVE: CASE EVENT DATE: 20190922
